FAERS Safety Report 10033894 (Version 4)
Quarter: 2014Q2

REPORT INFORMATION
  Report Type: Spontaneous
  Country: DE (occurrence: DE)
  Receive Date: 20140325
  Receipt Date: 20140624
  Transmission Date: 20141212
  Serious: Yes (Hospitalization)
  Sender: FDA-Public Use
  Company Number: DE-ROCHE-1359469

PATIENT
  Age: 50 Year
  Sex: Female

DRUGS (8)
  1. HERCEPTIN [Suspect]
     Indication: BREAST CANCER METASTATIC
     Route: 042
     Dates: start: 20131119
  2. IBUPROFEN [Concomitant]
  3. MARCOUMAR [Concomitant]
     Indication: VENOUS THROMBOSIS
     Route: 048
     Dates: start: 201310
  4. CITALOPRAM [Concomitant]
     Indication: DEPRESSION
     Route: 048
  5. AMISULPRIDE [Concomitant]
     Indication: DEPRESSION
     Route: 048
  6. MELNEURIN [Concomitant]
     Indication: DEPRESSION
     Route: 048
  7. OMEPRAZOL [Concomitant]
     Route: 065
  8. PARACETAMOL [Concomitant]
     Route: 065

REACTIONS (6)
  - Hypersensitivity vasculitis [Recovered/Resolved]
  - Arthralgia [Recovering/Resolving]
  - Erythema [Unknown]
  - Petechiae [Unknown]
  - Vasculitis [Recovering/Resolving]
  - Ecchymosis [Unknown]
